FAERS Safety Report 9672366 (Version 1)
Quarter: 2013Q4

REPORT INFORMATION
  Report Type: Report from Study
  Country: US (occurrence: US)
  Receive Date: 20131106
  Receipt Date: 20131106
  Transmission Date: 20140711
  Serious: Yes (Hospitalization)
  Sender: FDA-Public Use
  Company Number: PHEH2013US023142

PATIENT
  Age: 13 Year
  Sex: Female
  Weight: 40.8 kg

DRUGS (1)
  1. TOBI [Suspect]
     Indication: CYSTIC FIBROSIS
     Dosage: 300 MG, BID
     Dates: start: 20120410

REACTIONS (6)
  - Infective pulmonary exacerbation of cystic fibrosis [Not Recovered/Not Resolved]
  - Gastric disorder [Unknown]
  - Bronchiectasis [Unknown]
  - Chronic sinusitis [Unknown]
  - Asthma [Unknown]
  - Lung disorder [Unknown]
